FAERS Safety Report 12443447 (Version 2)
Quarter: 2016Q4

REPORT INFORMATION
  Report Type: Report from Study
  Country: IT (occurrence: IT)
  Receive Date: 20160607
  Receipt Date: 20161202
  Transmission Date: 20170207
  Serious: Yes (Hospitalization, Other)
  Sender: FDA-Public Use
  Company Number: IT-PFM-IT-2016-1287

PATIENT
  Age: 78 Year
  Sex: Male

DRUGS (1)
  1. VINORELBINE TARTRATE. [Suspect]
     Active Substance: VINORELBINE TARTRATE
     Indication: NON-SMALL CELL LUNG CANCER
     Dosage: 30 MG/M2, 60 MG TOTAL DOSE, ON DAYS 1 AND 8 (FIRST CYCLE) CYCLICAL
     Route: 042
     Dates: start: 20160125, end: 20160201

REACTIONS (6)
  - Rectal haemorrhage [Unknown]
  - Diverticulitis [Recovered/Resolved]
  - Intestinal obstruction [Unknown]
  - Abdominal pain [Unknown]
  - Anaemia [Unknown]
  - Constipation [Unknown]

NARRATIVE: CASE EVENT DATE: 20160205
